FAERS Safety Report 21879153 (Version 1)
Quarter: 2023Q1

REPORT INFORMATION
  Report Type: Spontaneous
  Country: US (occurrence: None)
  Receive Date: 20230117
  Receipt Date: 20230117
  Transmission Date: 20230417
  Serious: No
  Sender: FDA-Public Use
  Company Number: None

PATIENT
  Sex: Male
  Weight: 72.57 kg

DRUGS (13)
  1. CYCLOPHOSPHAMIDE [Suspect]
     Active Substance: CYCLOPHOSPHAMIDE
     Indication: Plasma cell myeloma
     Dosage: 400MG DAYS 1,8,15 ORAL - 28 DAY CYCLE
     Route: 048
  2. ANASTROZOLE [Concomitant]
  3. ARMOR THYROID [Concomitant]
  4. CALCIUM [Concomitant]
     Active Substance: CALCIUM
  5. CARNITOR [Concomitant]
  6. COENZYME Q-10 [Concomitant]
  7. FISH OIL [Concomitant]
  8. LUTEIN [Concomitant]
  9. OLANZAPINE [Concomitant]
  10. TUMERIC [Concomitant]
  11. VITAMIN C [Concomitant]
  12. VITAMIN D3 [Concomitant]
  13. ZINC SULFATE [Concomitant]

REACTIONS (1)
  - Nonspecific reaction [None]
